FAERS Safety Report 21539340 (Version 3)
Quarter: 2023Q1

REPORT INFORMATION
  Report Type: Report from Study
  Country: CA (occurrence: CA)
  Receive Date: 20221102
  Receipt Date: 20230116
  Transmission Date: 20230418
  Serious: No
  Sender: FDA-Public Use
  Company Number: CA-TAKEDA-2021TUS008951

PATIENT
  Age: 4 Year
  Sex: Male
  Weight: 23 kg

DRUGS (12)
  1. IDURSULFASE [Suspect]
     Active Substance: IDURSULFASE
     Indication: Mucopolysaccharidosis II
     Dosage: 3 DOSAGE FORM, 1/WEEK
     Route: 050
     Dates: start: 20210202
  2. IDURSULFASE [Suspect]
     Active Substance: IDURSULFASE
     Dosage: 12 MILLIGRAM, 1/WEEK
     Route: 065
     Dates: start: 20210202
  3. IDURSULFASE [Suspect]
     Active Substance: IDURSULFASE
     Dosage: 2 DOSAGE FORM, 1/WEEK
     Route: 065
     Dates: start: 20210202
  4. IDURSULFASE [Suspect]
     Active Substance: IDURSULFASE
     Dosage: 12 MILLIGRAM, 1/WEEK
     Route: 065
     Dates: start: 20210202
  5. IDURSULFASE [Suspect]
     Active Substance: IDURSULFASE
     Dosage: 12 MILLIGRAM, 1/WEEK
     Route: 065
     Dates: start: 20210202
  6. IDURSULFASE [Suspect]
     Active Substance: IDURSULFASE
     Dosage: 12 MILLIGRAM, 1/WEEK
     Route: 042
     Dates: start: 20210202
  7. IDURSULFASE [Suspect]
     Active Substance: IDURSULFASE
     Dosage: 2 DOSAGE FORM, 1/WEEK
     Route: 050
     Dates: start: 20210202
  8. IDURSULFASE [Suspect]
     Active Substance: IDURSULFASE
     Dosage: 17 MILLIGRAM, 1/WEEK
     Route: 065
     Dates: start: 20210202
  9. IDURSULFASE [Suspect]
     Active Substance: IDURSULFASE
     Dosage: 17 MILLIGRAM, 1/WEEK
     Route: 050
     Dates: start: 20210202
  10. IDURSULFASE [Suspect]
     Active Substance: IDURSULFASE
     Dosage: 3 DOSAGE FORM, 1/WEEK
     Route: 050
     Dates: start: 20210202
  11. IDURSULFASE [Suspect]
     Active Substance: IDURSULFASE
     Dosage: 17 MILLIGRAM, 1/WEEK
     Route: 050
     Dates: start: 20210202
  12. IDURSULFASE [Suspect]
     Active Substance: IDURSULFASE
     Dosage: 3 DOSAGE FORM, 1/WEEK
     Route: 050
     Dates: start: 20210202

REACTIONS (26)
  - Blood pressure increased [Recovering/Resolving]
  - Injection site erythema [Unknown]
  - Respiratory rate decreased [Recovering/Resolving]
  - Infusion related reaction [Unknown]
  - Insomnia [Unknown]
  - Catheter site related reaction [Unknown]
  - Patient uncooperative [Unknown]
  - Ear disorder [Unknown]
  - Otorrhoea [Not Recovered/Not Resolved]
  - Crying [Unknown]
  - Agitation [Unknown]
  - Weight increased [Unknown]
  - Device infusion issue [Unknown]
  - Injection site injury [Unknown]
  - Otitis media [Recovering/Resolving]
  - Ear infection [Not Recovered/Not Resolved]
  - Viral infection [Recovering/Resolving]
  - Scab [Recovering/Resolving]
  - Swelling [Recovering/Resolving]
  - Application site vesicles [Recovering/Resolving]
  - Cough [Recovering/Resolving]
  - Pruritus [Recovering/Resolving]
  - Fatigue [Recovered/Resolved]
  - Asthenia [Recovered/Resolved]
  - Vomiting [Recovered/Resolved]
  - Inappropriate schedule of product administration [Unknown]

NARRATIVE: CASE EVENT DATE: 20210916
